FAERS Safety Report 9178125 (Version 1)
Quarter: 2013Q1

REPORT INFORMATION
  Report Type: Spontaneous
  Country: US (occurrence: US)
  Receive Date: 20130321
  Receipt Date: 20130321
  Transmission Date: 20140127
  Serious: Yes (Life-Threatening, Hospitalization, Other)
  Sender: FDA-Public Use
  Company Number: US-ELI_LILLY_AND_COMPANY-US201303006261

PATIENT
  Sex: Male
  Weight: 117.91 kg

DRUGS (2)
  1. EFFIENT [Suspect]
     Indication: STENT PLACEMENT
     Dosage: 10 MG, QD
     Dates: start: 20121223
  2. ALEVE [Concomitant]
     Indication: BACK PAIN
     Dosage: 220 MG, BID
     Dates: end: 20120304

REACTIONS (2)
  - Gastrointestinal haemorrhage [Recovered/Resolved]
  - Syncope [Unknown]
